FAERS Safety Report 4464166-X (Version None)
Quarter: 2004Q4

REPORT INFORMATION
  Report Type: 
  Country: None (occurrence: None)
  Receive Date: 20041001
  Receipt Date: 20031112
  Transmission Date: 20050328
  Serious: Yes (Hospitalization)
  Sender: FDA-Public Use
  Company Number: US-ROCHE-351746

PATIENT
  Age: 44 Year
  Sex: Male
  Weight: 73 kg

DRUGS (2)
  1. FUZEON [Suspect]
     Indication: HIV INFECTION
     Route: 058
     Dates: start: 20031013
  2. FUZEON [Suspect]
     Route: 058
     Dates: start: 20031110

REACTIONS (8)
  - DEVICE FAILURE [None]
  - INJECTION SITE REACTION [None]
  - MEDICATION ERROR [None]
  - PNEUMONIA [None]
  - SKIN DISORDER [None]
  - T-LYMPHOCYTE COUNT DECREASED [None]
  - TREATMENT NONCOMPLIANCE [None]
  - VIRAL LOAD INCREASED [None]
